FAERS Safety Report 5079235-3 (Version None)
Quarter: 2006Q3

REPORT INFORMATION
  Report Type: 
  Country: None (occurrence: None)
  Receive Date: 20060720
  Receipt Date: 20050701
  Transmission Date: 20061208
  Serious: Yes (Other)
  Sender: FDA-Public Use
  Company Number: 2005087280

PATIENT
  Age: 72 Year
  Sex: Female
  Weight: 56.6996 kg

DRUGS (5)
  1. CELEBREX [Suspect]
     Indication: EXOSTOSIS
     Dosage: 100 MG (100 MG, 1 IN 1 D), ORAL
     Route: 048
     Dates: start: 20020101
  2. BEXTRA [Suspect]
     Indication: EXOSTOSIS
     Dosage: 20 MG (20 MG), ORAL
     Route: 048
  3. ACETYLSALICYLIC ACID [Concomitant]
  4. ATENOLOL [Concomitant]
  5. PLAVIX [Concomitant]

REACTIONS (6)
  - CORONARY ARTERY STENOSIS [None]
  - HERPES ZOSTER [None]
  - MEDICAL DIET [None]
  - PRURITUS [None]
  - RASH [None]
  - WEIGHT INCREASED [None]
